FAERS Safety Report 9867464 (Version 5)
Quarter: 2014Q1

REPORT INFORMATION
  Report Type: Report from Study
  Country: GB (occurrence: GB)
  Receive Date: 20140204
  Receipt Date: 20140313
  Transmission Date: 20141002
  Serious: Yes (Death, Hospitalization)
  Sender: FDA-Public Use
  Company Number: GB-ROCHE-1336384

PATIENT
  Age: 66 Year
  Sex: Female
  Weight: 71.7 kg

DRUGS (16)
  1. TOCILIZUMAB [Suspect]
     Indication: RHEUMATOID ARTHRITIS
     Dosage: LAST DOSE PRIOR TO SAE 19 DEC 2013.
     Route: 042
     Dates: start: 20131121, end: 20140116
  2. TOCILIZUMAB [Suspect]
     Route: 042
     Dates: start: 20131121, end: 20140116
  3. METHOTREXATE [Suspect]
     Indication: RHEUMATOID ARTHRITIS
     Dosage: LAST DOSE PRIOR TO SAE 10 JAN 2014.
     Route: 048
     Dates: start: 20131111, end: 20140116
  4. CALCITROL [Concomitant]
     Route: 048
     Dates: start: 20040220
  5. OMEPRAZOLE [Concomitant]
     Indication: PROPHYLAXIS
     Route: 048
     Dates: start: 20030718
  6. CYCLIZINE [Concomitant]
     Indication: ANALGESIC THERAPY
     Route: 048
     Dates: start: 20120524
  7. ORAMORPH [Concomitant]
     Indication: ANALGESIC THERAPY
     Route: 048
     Dates: start: 20120524
  8. PREDNISOLONE [Concomitant]
     Route: 048
     Dates: start: 20040220
  9. GABAPENTIN [Concomitant]
     Indication: ANALGESIC THERAPY
     Route: 048
     Dates: start: 20130908
  10. ATORVASTATIN [Concomitant]
     Indication: BLOOD CHOLESTEROL INCREASED
     Route: 048
     Dates: start: 20050219
  11. TRAMADOL [Concomitant]
     Indication: ANALGESIC THERAPY
     Route: 048
     Dates: start: 20050908
  12. SULFASALAZINE [Concomitant]
     Indication: RHEUMATOID ARTHRITIS
     Route: 048
     Dates: start: 20020429, end: 20131118
  13. FOLIC ACID [Concomitant]
     Indication: PROPHYLAXIS
     Route: 048
     Dates: start: 20040115
  14. HYDROXYCHLOROQUINE [Concomitant]
     Indication: RHEUMATOID ARTHRITIS
     Route: 048
     Dates: start: 20130107, end: 20131118
  15. NITROFURANTOIN [Concomitant]
     Indication: URINARY TRACT INFECTION
     Route: 048
     Dates: start: 20140109, end: 20140116
  16. COTRIMOXAZOLE [Concomitant]
     Route: 065
     Dates: start: 20140128, end: 20140203

REACTIONS (2)
  - Respiratory failure [Fatal]
  - Urinary tract infection [Not Recovered/Not Resolved]
